FAERS Safety Report 10060312 (Version 1)
Quarter: 2014Q2

REPORT INFORMATION
  Report Type: Report from Study
  Country: MX (occurrence: MX)
  Receive Date: 20140404
  Receipt Date: 20140404
  Transmission Date: 20141212
  Serious: Yes (Other)
  Sender: FDA-Public Use
  Company Number: PHHY2014MX040283

PATIENT
  Age: 51 Year
  Sex: Female

DRUGS (3)
  1. ONBREZ [Suspect]
     Indication: EMPHYSEMA
     Dosage: 150 UG, OCCASIONALLY
     Route: 062
     Dates: start: 201311
  2. ONBREZ [Suspect]
     Indication: OFF LABEL USE
  3. PLAVIX [Concomitant]
     Indication: PERIPHERAL VASCULAR DISORDER
     Dosage: 1 DF, DAILY
     Dates: start: 2003

REACTIONS (6)
  - Vasculitis [Not Recovered/Not Resolved]
  - Depression [Not Recovered/Not Resolved]
  - Bone decalcification [Not Recovered/Not Resolved]
  - Malaise [Not Recovered/Not Resolved]
  - Drug administration error [Not Recovered/Not Resolved]
  - Incorrect route of drug administration [Unknown]
